FAERS Safety Report 4341727-X (Version None)
Quarter: 2004Q2

REPORT INFORMATION
  Report Type: 
  Country: None (occurrence: None)
  Receive Date: 20040420
  Receipt Date: 20040409
  Transmission Date: 20050107
  Serious: Yes (Other)
  Sender: FDA-Public Use
  Company Number: JP-MERCK-0404USA01220

PATIENT
  Age: 62 Year
  Sex: Male

DRUGS (2)
  1. NOROXIN [Suspect]
     Route: 048
     Dates: start: 20020901
  2. TRAPIDIL [Suspect]
     Route: 065

REACTIONS (2)
  - LIVER DISORDER [None]
  - RENAL FAILURE ACUTE [None]
